FAERS Safety Report 24751792 (Version 1)
Quarter: 2024Q4

REPORT INFORMATION
  Report Type: Spontaneous
  Country: CN (occurrence: CN)
  Receive Date: 20241219
  Receipt Date: 20241219
  Transmission Date: 20250115
  Serious: Yes (Hospitalization)
  Sender: SANDOZ
  Company Number: CN-002147023-NVSC2024CN237554

PATIENT
  Age: 70 Year
  Sex: Male
  Weight: 70 kg

DRUGS (23)
  1. DEXAMETHASONE\TOBRAMYCIN [Suspect]
     Active Substance: DEXAMETHASONE\TOBRAMYCIN
     Indication: Antiinflammatory therapy
     Dosage: 4 DROP, QD (1 DRP, QID)
     Route: 047
     Dates: start: 20241123, end: 20241206
  2. DEXAMETHASONE\TOBRAMYCIN [Suspect]
     Active Substance: DEXAMETHASONE\TOBRAMYCIN
     Indication: Astringent therapy
  3. DEXAMETHASONE\TOBRAMYCIN [Suspect]
     Active Substance: DEXAMETHASONE\TOBRAMYCIN
     Indication: Cataract
  4. DEXAMETHASONE\TOBRAMYCIN [Suspect]
     Active Substance: DEXAMETHASONE\TOBRAMYCIN
     Indication: Dry eye
  5. DEXAMETHASONE\TOBRAMYCIN [Suspect]
     Active Substance: DEXAMETHASONE\TOBRAMYCIN
     Indication: Infection
  6. DEXAMETHASONE\TOBRAMYCIN [Suspect]
     Active Substance: DEXAMETHASONE\TOBRAMYCIN
     Indication: Antiinflammatory therapy
     Dosage: UNK
     Route: 065
     Dates: start: 20241123
  7. DEXAMETHASONE\TOBRAMYCIN [Suspect]
     Active Substance: DEXAMETHASONE\TOBRAMYCIN
     Indication: Astringent therapy
  8. DEXAMETHASONE\TOBRAMYCIN [Suspect]
     Active Substance: DEXAMETHASONE\TOBRAMYCIN
     Indication: Dry eye
  9. DEXAMETHASONE\TOBRAMYCIN [Suspect]
     Active Substance: DEXAMETHASONE\TOBRAMYCIN
     Indication: Infection
  10. DEXTRAN [Concomitant]
     Active Substance: DEXTRAN
     Indication: Xerophthalmia
     Dosage: 1 DRP, TID (70)
     Route: 047
     Dates: start: 20241123, end: 20241206
  11. DEXTRAN [Concomitant]
     Active Substance: DEXTRAN
     Indication: Antiinflammatory therapy
  12. DEXTRAN [Concomitant]
     Active Substance: DEXTRAN
     Indication: Astringent therapy
  13. DEXTRAN [Concomitant]
     Active Substance: DEXTRAN
     Indication: Dry eye
  14. DEXTRAN [Concomitant]
     Active Substance: DEXTRAN
     Indication: Infection
  15. GLYCERIN [Concomitant]
     Active Substance: GLYCERIN
     Indication: Xerophthalmia
     Dosage: 1 DRP, TID
     Route: 047
     Dates: start: 20241123, end: 20241206
  16. GLYCERIN [Concomitant]
     Active Substance: GLYCERIN
     Indication: Antiinflammatory therapy
  17. GLYCERIN [Concomitant]
     Active Substance: GLYCERIN
     Indication: Dry eye
  18. GLYCERIN [Concomitant]
     Active Substance: GLYCERIN
     Indication: Infection
  19. HYPROMELLOSES [Concomitant]
     Active Substance: HYPROMELLOSES
     Indication: Xerophthalmia
     Dosage: 1 DRP, TID (2910)
     Route: 047
     Dates: start: 20241123, end: 20241206
  20. HYPROMELLOSES [Concomitant]
     Active Substance: HYPROMELLOSES
     Indication: Antiinflammatory therapy
  21. HYPROMELLOSES [Concomitant]
     Active Substance: HYPROMELLOSES
     Indication: Astringent therapy
  22. HYPROMELLOSES [Concomitant]
     Active Substance: HYPROMELLOSES
     Indication: Dry eye
  23. HYPROMELLOSES [Concomitant]
     Active Substance: HYPROMELLOSES
     Indication: Infection

REACTIONS (3)
  - Intraocular pressure increased [Recovered/Resolved]
  - Vision blurred [Unknown]
  - Eye inflammation [Unknown]

NARRATIVE: CASE EVENT DATE: 20241205
